FAERS Safety Report 10765335 (Version 1)
Quarter: 2015Q1

REPORT INFORMATION
  Report Type: Spontaneous
  Country: US (occurrence: None)
  Receive Date: 20150204
  Receipt Date: 20150204
  Transmission Date: 20150721
  Serious: No
  Sender: FDA-Public Use
  Company Number: None

PATIENT
  Age: 40 Year
  Sex: Female
  Weight: 62.6 kg

DRUGS (1)
  1. VYVANSE [Suspect]
     Active Substance: LISDEXAMFETAMINE DIMESYLATE
     Indication: ATTENTION DEFICIT/HYPERACTIVITY DISORDER
     Route: 048
     Dates: start: 20150101, end: 20150131

REACTIONS (4)
  - Oropharyngeal pain [None]
  - Product physical issue [None]
  - Wrong technique in drug usage process [None]
  - Dysphagia [None]

NARRATIVE: CASE EVENT DATE: 20150113
